FAERS Safety Report 5400242-2 (Version None)
Quarter: 2007Q3

REPORT INFORMATION
  Report Type: 
  Country: None (occurrence: None)
  Receive Date: 20070730
  Receipt Date: 20070717
  Transmission Date: 20080115
  Serious: Yes (Congenital Anomaly)
  Sender: FDA-Public Use
  Company Number: US-ROCHE-454539

PATIENT
  Sex: Male
  Weight: 4.6 kg

DRUGS (4)
  1. ACCUTANE [Suspect]
     Indication: ACNE
     Dates: start: 19870101
  2. ACCUTANE [Suspect]
     Dates: start: 19940713
  3. ACCUTANE [Suspect]
  4. ACCUTANE [Suspect]
     Dates: start: 19940824, end: 19950101

REACTIONS (1)
  - TRANSPOSITION OF THE GREAT VESSELS [None]
